FAERS Safety Report 9136942 (Version 1)
Quarter: 2013Q1

REPORT INFORMATION
  Report Type: Report from Study
  Country: US (occurrence: US)
  Receive Date: 20130304
  Receipt Date: 20130304
  Transmission Date: 20140127
  Serious: No
  Sender: FDA-Public Use
  Company Number: US-ABBOTT-13P-163-1033228-00

PATIENT
  Age: 52 Year
  Sex: Male
  Weight: 81.72 kg

DRUGS (3)
  1. ANDROGEL [Suspect]
     Indication: BLOOD TESTOSTERONE DECREASED
     Dosage: 1 PUMP DAILY
     Dates: start: 2012, end: 2012
  2. ANDROGEL [Suspect]
     Dosage: 2 PUMPS DAILY
     Dates: start: 2012, end: 2012
  3. ANDROGEL [Suspect]
     Dosage: 3 PUMPS DAILY
     Dates: start: 20130101

REACTIONS (4)
  - Blood testosterone decreased [Unknown]
  - Blood testosterone decreased [Unknown]
  - Drug ineffective [Unknown]
  - Blood testosterone decreased [Unknown]
